FAERS Safety Report 6192135-0 (Version None)
Quarter: 2009Q2

REPORT INFORMATION
  Report Type: 
  Country: None (occurrence: None)
  Receive Date: 20090515
  Receipt Date: 20081201
  Transmission Date: 20091009
  Serious: Yes (Other)
  Sender: FDA-Public Use
  Company Number: US-PFIZER INC-2008073504

PATIENT
  Sex: Female
  Weight: 53.968 kg

DRUGS (7)
  1. CHANTIX [Suspect]
     Route: 048
     Dates: start: 20080821, end: 20080901
  2. ZOLOFT [Concomitant]
  3. ESTRADIOL [Concomitant]
  4. SYNTHROID [Concomitant]
  5. VYTORIN [Concomitant]
  6. ALPRAZOLAM [Concomitant]
  7. LEVOTHROID [Concomitant]

REACTIONS (5)
  - ABNORMAL BEHAVIOUR [None]
  - ANGER [None]
  - PSYCHOTIC DISORDER [None]
  - SCREAMING [None]
  - SUICIDAL IDEATION [None]
